FAERS Safety Report 18822616 (Version 1)
Quarter: 2021Q1

REPORT INFORMATION
  Report Type: Other
  Country: US (occurrence: US)
  Receive Date: 20210202
  Receipt Date: 20210202
  Transmission Date: 20210419
  Serious: Yes (Other)
  Sender: FDA-Public Use
  Company Number: US-ROCHE-2757618

PATIENT
  Sex: Female

DRUGS (17)
  1. ACTEMRA [Suspect]
     Active Substance: TOCILIZUMAB
  2. ACTEMRA [Suspect]
     Active Substance: TOCILIZUMAB
     Indication: GIANT CELL ARTERITIS
     Dosage: SYRINGE 162 MG/ 0.9 ML
     Route: 058
     Dates: start: 20200629
  3. ACTEMRA [Suspect]
     Active Substance: TOCILIZUMAB
     Indication: POLYMYALGIA RHEUMATICA
  4. DELTASONE [Concomitant]
     Active Substance: PREDNISONE
     Dates: start: 20200618
  5. ACTEMRA [Suspect]
     Active Substance: TOCILIZUMAB
  6. LIPITOR [Concomitant]
     Active Substance: ATORVASTATIN CALCIUM
     Dates: start: 20200602
  7. ACTEMRA [Suspect]
     Active Substance: TOCILIZUMAB
  8. ACTEMRA [Suspect]
     Active Substance: TOCILIZUMAB
  9. PLAVIX [Concomitant]
     Active Substance: CLOPIDOGREL BISULFATE
     Dates: start: 20200602
  10. ACTEMRA [Suspect]
     Active Substance: TOCILIZUMAB
  11. ACTEMRA [Suspect]
     Active Substance: TOCILIZUMAB
     Indication: GIANT CELL ARTERITIS
     Dosage: INJECT 162MG SUBCUTANEOUSLY EVERY 7 DAY(S)
     Route: 058
  12. ASPIRIN. [Concomitant]
     Active Substance: ASPIRIN
  13. ACTEMRA [Suspect]
     Active Substance: TOCILIZUMAB
  14. ZOLOFT [Concomitant]
     Active Substance: SERTRALINE HYDROCHLORIDE
     Dates: start: 20200527
  15. LISINOPRIL. [Concomitant]
     Active Substance: LISINOPRIL
     Dates: start: 20200508
  16. DELTASONE [Concomitant]
     Active Substance: PREDNISONE
     Dates: start: 20200603
  17. BACTRIM DS [Concomitant]
     Active Substance: SULFAMETHOXAZOLE\TRIMETHOPRIM
     Dates: start: 20200618

REACTIONS (3)
  - Lower limb fracture [Unknown]
  - Carpal tunnel syndrome [Unknown]
  - Weight decreased [Unknown]
